FAERS Safety Report 4761474-X (Version None)
Quarter: 2005Q3

REPORT INFORMATION
  Report Type: 
  Country: None (occurrence: None)
  Receive Date: 20050830
  Receipt Date: 20050615
  Transmission Date: 20060218
  Serious: Yes (Other)
  Sender: FDA-Public Use
  Company Number: USA050699604

PATIENT
  Age: 51 Year
  Sex: Female
  Weight: 73 kg

DRUGS (7)
  1. SYMBYAX [Suspect]
     Indication: BIPOLAR I DISORDER
     Dates: start: 20040401, end: 20050322
  2. ZYPREXA [Suspect]
     Indication: BIPOLAR I DISORDER
     Dosage: 10 MG/1 DAY
     Dates: start: 20040308, end: 20040401
  3. GEODON [Concomitant]
  4. LORAZEPAM [Concomitant]
  5. TOPAMAX [Concomitant]
  6. OXYCODONE HCL [Concomitant]
  7. ZOMEPIRAC [Concomitant]

REACTIONS (20)
  - ABDOMINAL PAIN UPPER [None]
  - ANOREXIA [None]
  - APATHY [None]
  - DEPRESSION [None]
  - DIARRHOEA [None]
  - DYSPEPSIA [None]
  - FEAR [None]
  - FEELING ABNORMAL [None]
  - HEPATIC ENZYME INCREASED [None]
  - INCREASED APPETITE [None]
  - INSOMNIA [None]
  - MANIA [None]
  - MEMORY IMPAIRMENT [None]
  - PANIC REACTION [None]
  - RESTLESSNESS [None]
  - SEDATION [None]
  - SOCIAL AVOIDANT BEHAVIOUR [None]
  - SOMNOLENCE [None]
  - WEIGHT DECREASED [None]
  - WEIGHT INCREASED [None]
